FAERS Safety Report 10501316 (Version 1)
Quarter: 2014Q4

REPORT INFORMATION
  Report Type: Spontaneous
  Country: TR (occurrence: TR)
  Receive Date: 20141007
  Receipt Date: 20141007
  Transmission Date: 20150528
  Serious: Yes (Other)
  Sender: FDA-Public Use
  Company Number: TR-PAR PHARMACEUTICAL, INC-2014SCPR009425

PATIENT

DRUGS (7)
  1. KETALAR [Suspect]
     Active Substance: KETAMINE HYDROCHLORIDE
     Indication: SEDATIVE THERAPY
     Dosage: 0.5 MG/KG, SINGLE
  2. BUPIVACAINE [Suspect]
     Active Substance: BUPIVACAINE
     Indication: INFILTRATION ANAESTHESIA
     Dosage: 1-2 MG/KG, SINGLE
     Route: 061
  3. MIDAZOLAM [Suspect]
     Active Substance: MIDAZOLAM\MIDAZOLAM HYDROCHLORIDE
     Indication: ANAESTHETIC PREMEDICATION
     Dosage: 0.5 MG/KG, SINGLE
  4. KETALAR [Suspect]
     Active Substance: KETAMINE HYDROCHLORIDE
     Indication: ANALGESIC THERAPY
     Dosage: 0.5 MG/KG, SINGLE
  5. KETALAR [Suspect]
     Active Substance: KETAMINE HYDROCHLORIDE
     Dosage: 0.25 MG/KG, PRN
  6. MIDAZOLAM [Suspect]
     Active Substance: MIDAZOLAM\MIDAZOLAM HYDROCHLORIDE
     Indication: SEDATIVE THERAPY
  7. ATROPINE [Suspect]
     Active Substance: ATROPINE
     Indication: PROPHYLAXIS
     Dosage: 0.02 MG/KG, UNKNOWN
     Route: 065

REACTIONS (1)
  - Respiratory arrest [Recovered/Resolved]
